FAERS Safety Report 19084216 (Version 1)
Quarter: 2021Q2

REPORT INFORMATION
  Report Type: Report from Study
  Country: US (occurrence: US)
  Receive Date: 20210401
  Receipt Date: 20210401
  Transmission Date: 20210717
  Serious: Yes (Disabling, Other)
  Sender: FDA-Public Use
  Company Number: US-BAYER-2021-111125

PATIENT
  Age: 59 Year
  Sex: Female

DRUGS (8)
  1. GADOBUTROL. [Suspect]
     Active Substance: GADOBUTROL
     Indication: ARTHROGRAM
     Dosage: UNK
  2. GADOBUTROL. [Suspect]
     Active Substance: GADOBUTROL
     Indication: PAIN IN EXTREMITY
     Dosage: UNK
  3. GADOBUTROL. [Suspect]
     Active Substance: GADOBUTROL
     Indication: TINNITUS
  4. GADOBUTROL. [Suspect]
     Active Substance: GADOBUTROL
     Indication: TENDON INJURY
  5. GADOBUTROL. [Suspect]
     Active Substance: GADOBUTROL
     Indication: VISION BLURRED
     Dosage: UNK
  6. GADOBUTROL. [Suspect]
     Active Substance: GADOBUTROL
     Indication: BURNING SENSATION
  7. GADOBUTROL. [Suspect]
     Active Substance: GADOBUTROL
     Indication: ANGIOGRAM
     Dosage: UNK
  8. GADOBUTROL. [Suspect]
     Active Substance: GADOBUTROL
     Indication: INSOMNIA

REACTIONS (7)
  - Burning sensation [None]
  - Tinnitus [None]
  - Feeling abnormal [None]
  - Vision blurred [None]
  - Headache [None]
  - Gadolinium deposition disease [None]
  - Muscle contractions involuntary [None]
